FAERS Safety Report 20832534 (Version 1)
Quarter: 2022Q2

REPORT INFORMATION
  Report Type: Spontaneous
  Country: CA (occurrence: CA)
  Receive Date: 20220516
  Receipt Date: 20220516
  Transmission Date: 20220721
  Serious: Yes (Other)
  Sender: FDA-Public Use
  Company Number: CA-TEVA-2022-CA-2035898

PATIENT
  Sex: Male

DRUGS (7)
  1. HYDROMORPHONE HYDROCHLORIDE [Suspect]
     Active Substance: HYDROMORPHONE HYDROCHLORIDE
     Indication: Product used for unknown indication
     Route: 048
  2. BUTRANS [Suspect]
     Active Substance: BUPRENORPHINE
     Indication: Product used for unknown indication
     Route: 062
  3. BUTRANS [Suspect]
     Active Substance: BUPRENORPHINE
     Route: 062
  4. BUTRANS [Suspect]
     Active Substance: BUPRENORPHINE
     Route: 062
  5. OXYCONTIN [Suspect]
     Active Substance: OXYCODONE HYDROCHLORIDE
     Indication: Product used for unknown indication
     Dosage: 320 MILLIGRAM DAILY;
     Route: 048
  6. OXYCODONE [Suspect]
     Active Substance: OXYCODONE
     Indication: Product used for unknown indication
     Route: 048
  7. SUBOXONE [Suspect]
     Active Substance: BUPRENORPHINE HYDROCHLORIDE\NALOXONE HYDROCHLORIDE
     Indication: Product used for unknown indication
     Route: 048

REACTIONS (10)
  - Anxiety [Unknown]
  - Constipation [Unknown]
  - Depression [Unknown]
  - Drug dependence [Unknown]
  - Fear [Unknown]
  - Gastritis [Unknown]
  - Mood altered [Unknown]
  - Pain [Unknown]
  - Spinal stenosis [Unknown]
  - Withdrawal syndrome [Unknown]
